FAERS Safety Report 10463902 (Version 2)
Quarter: 2014Q4

REPORT INFORMATION
  Report Type: Spontaneous
  Country: US (occurrence: US)
  Receive Date: 20140919
  Receipt Date: 20141114
  Transmission Date: 20150528
  Serious: No
  Sender: FDA-Public Use
  Company Number: US-PFIZER INC-2014257668

PATIENT
  Age: 67 Year
  Sex: Female

DRUGS (1)
  1. CELEBREX [Suspect]
     Active Substance: CELECOXIB
     Dosage: 200 MG, 1X/DAY
     Dates: start: 2013

REACTIONS (1)
  - Cardiac disorder [Unknown]
